FAERS Safety Report 14101298 (Version 1)
Quarter: 2017Q4

REPORT INFORMATION
  Report Type: Spontaneous
  Country: US (occurrence: None)
  Receive Date: 20171017
  Receipt Date: 20171017
  Transmission Date: 20180321
  Serious: Yes (Hospitalization)
  Sender: FDA-Public Use
  Company Number: None

PATIENT
  Age: 65 Year
  Sex: Female
  Weight: 115.21 kg

DRUGS (18)
  1. ACETAMINOPHEN. [Concomitant]
     Active Substance: ACETAMINOPHEN
  2. DIPHENOXYLATE-ATROPINE [Concomitant]
  3. HYDROCODONE-ACETAMINOPHEN [Concomitant]
     Active Substance: ACETAMINOPHEN\HYDROCODONE
  4. HYDROMORPHONE [Concomitant]
     Active Substance: HYDROMORPHONE
  5. INSULIN [Concomitant]
     Active Substance: INSULIN NOS
  6. ULTRAM [Concomitant]
     Active Substance: TRAMADOL HYDROCHLORIDE
  7. FOLIC ACID. [Concomitant]
     Active Substance: FOLIC ACID
  8. LISINOPRIL. [Concomitant]
     Active Substance: LISINOPRIL
  9. FLUTICASONE. [Concomitant]
     Active Substance: FLUTICASONE
  10. PRILOSEC [Concomitant]
     Active Substance: OMEPRAZOLE MAGNESIUM
  11. ATENOLOL. [Concomitant]
     Active Substance: ATENOLOL
  12. CHOLECALCIFEROL [Concomitant]
     Active Substance: CHOLECALCIFEROL
  13. REGORFENIB 40MG TABLETS [Suspect]
     Active Substance: REGORAFENIB
     Indication: RECTAL ADENOCARCINOMA
     Dosage: 160 MG DAY 1-21 ORAL
     Route: 048
     Dates: start: 20170616
  14. ATIVAN [Concomitant]
     Active Substance: LORAZEPAM
  15. ZOCOR [Concomitant]
     Active Substance: SIMVASTATIN
  16. WARFARIN [Concomitant]
     Active Substance: WARFARIN
  17. ZOFRAN [Concomitant]
     Active Substance: ONDANSETRON HYDROCHLORIDE
  18. K-DUR [Concomitant]
     Active Substance: POTASSIUM CHLORIDE

REACTIONS (1)
  - Large intestinal obstruction [None]

NARRATIVE: CASE EVENT DATE: 20171013
